FAERS Safety Report 4439380-X (Version None)
Quarter: 2004Q3

REPORT INFORMATION
  Report Type: 
  Country: None (occurrence: None)
  Receive Date: 20040831
  Receipt Date: 20040820
  Transmission Date: 20050211
  Serious: Yes (Other)
  Sender: FDA-Public Use
  Company Number: S04-USA-05508-01

PATIENT
  Age: 97 Year
  Sex: Female

DRUGS (13)
  1. NAMENDA [Suspect]
     Indication: DEMENTIA ALZHEIMER'S TYPE
     Dosage: 5 MG QD PO
     Route: 048
     Dates: start: 20040201, end: 20040201
  2. ARICEPT 9DONEPEZIL HYDROCHLORIDE) [Concomitant]
  3. CARDIZEM 9DILTIAZEM HYDROCHLORIDE) [Concomitant]
  4. ALTACE [Concomitant]
  5. COUMADIN [Concomitant]
  6. PLAVIX [Concomitant]
  7. CALCIUM [Concomitant]
  8. METOPROLOL [Concomitant]
  9. IMDUR [Concomitant]
  10. IRON [Concomitant]
  11. ZINC [Concomitant]
  12. LASIX (FUROSEMIDE0 [Concomitant]
  13. MULTI-VITAMIN [Concomitant]

REACTIONS (2)
  - DEAFNESS TRANSITORY [None]
  - TINNITUS [None]
